FAERS Safety Report 6897825-X (Version None)
Quarter: 2010Q3

REPORT INFORMATION
  Report Type: 
  Country: None (occurrence: None)
  Receive Date: 20100802
  Receipt Date: 20070801
  Transmission Date: 20110219
  Serious: Yes (Other)
  Sender: FDA-Public Use
  Company Number: US-PFIZER INC-2007063604

PATIENT
  Sex: Female
  Weight: 65.8 kg

DRUGS (6)
  1. LYRICA [Suspect]
     Indication: DIABETIC NEUROPATHY
     Dates: start: 20070701
  2. PLAVIX [Concomitant]
  3. LIPITOR [Concomitant]
  4. XOPENEX [Concomitant]
  5. SPIRIVA [Concomitant]
  6. PULMICORT [Concomitant]

REACTIONS (2)
  - DIZZINESS [None]
  - IMPAIRED DRIVING ABILITY [None]
